FAERS Safety Report 5280530-3 (Version None)
Quarter: 2007Q1

REPORT INFORMATION
  Report Type: 
  Country: None (occurrence: None)
  Receive Date: 20070329
  Receipt Date: 20070323
  Transmission Date: 20070707
  Serious: Yes (Hospitalization)
  Sender: FDA-Public Use
  Company Number: GB-AVENTIS-200712652GDDC

PATIENT
  Sex: Female

DRUGS (3)
  1. LANTUS [Suspect]
  2. OPTIPEN (INSULIN PUMP) [Suspect]
  3. HUMALOG                            /00030501/ [Concomitant]
     Dosage: DOSE: UNK

REACTIONS (3)
  - ANAL SKIN TAGS [None]
  - MALAISE [None]
  - MYOCARDIAL INFARCTION [None]
